FAERS Safety Report 9340726 (Version 1)
Quarter: 2013Q2

REPORT INFORMATION
  Report Type: Spontaneous
  Country: PL (occurrence: PL)
  Receive Date: 20130610
  Receipt Date: 20130610
  Transmission Date: 20140414
  Serious: Yes (Other)
  Sender: FDA-Public Use
  Company Number: PL-GLAXOSMITHKLINE-B0898113A

PATIENT
  Age: 70 Year
  Sex: Male

DRUGS (1)
  1. DUODART [Suspect]
     Indication: EXERESIS
     Route: 065

REACTIONS (2)
  - Urinary tract infection [Recovering/Resolving]
  - White blood cell count increased [Unknown]
